FAERS Safety Report 6063171-X (Version None)
Quarter: 2009Q1

REPORT INFORMATION
  Report Type: 
  Country: None (occurrence: None)
  Receive Date: 20090203
  Receipt Date: 20090130
  Transmission Date: 20090719
  Serious: Yes (Hospitalization, Other)
  Sender: FDA-Public Use
  Company Number: DE-ABBOTT-08P-062-0489992-00

PATIENT
  Sex: Female

DRUGS (11)
  1. HUMIRA [Suspect]
     Indication: RHEUMATOID ARTHRITIS
     Route: 058
     Dates: start: 20070407, end: 20080801
  2. HUMIRA [Suspect]
     Route: 058
     Dates: end: 20081020
  3. HUMIRA [Suspect]
     Route: 058
     Dates: start: 20081130, end: 20081230
  4. ARAVA [Concomitant]
     Indication: DRUG USE FOR UNKNOWN INDICATION
  5. BELOC ZOK [Concomitant]
     Indication: DRUG USE FOR UNKNOWN INDICATION
  6. DECORTIN H [Concomitant]
     Indication: DRUG USE FOR UNKNOWN INDICATION
  7. HERPHONAL [Concomitant]
     Indication: DRUG USE FOR UNKNOWN INDICATION
  8. AMETRILIN [Concomitant]
     Indication: DRUG USE FOR UNKNOWN INDICATION
  9. PANTOPRAZOL [Concomitant]
     Indication: DRUG USE FOR UNKNOWN INDICATION
  10. AMITRYPTILLIN [Concomitant]
     Indication: DRUG USE FOR UNKNOWN INDICATION
  11. IBUPROFEN [Concomitant]
     Indication: DRUG USE FOR UNKNOWN INDICATION

REACTIONS (7)
  - BILIARY COLIC [None]
  - CHOLELITHIASIS [None]
  - CHOLESTASIS [None]
  - HEPATITIS [None]
  - HERPES ZOSTER [None]
  - IMPAIRED HEALING [None]
  - PANCREATITIS [None]
